FAERS Safety Report 26131522 (Version 1)
Quarter: 2025Q4

REPORT INFORMATION
  Report Type: Spontaneous
  Country: US (occurrence: None)
  Receive Date: 20251205
  Receipt Date: 20251205
  Transmission Date: 20260117
  Serious: Yes (Hospitalization)
  Sender: FDA-CTU
  Company Number: None

PATIENT
  Sex: Female
  Weight: 57.15 kg

DRUGS (20)
  1. TOBRAMYCIN [Suspect]
     Active Substance: TOBRAMYCIN
     Indication: Pneumonia
     Dosage: FREQUENCY : TWICE A DAY;
     Route: 055
     Dates: start: 20251004
  2. GABAPENTIN [Concomitant]
     Active Substance: GABAPENTIN
  3. XOPENOX HFA [Concomitant]
  4. ELIQUIS [Concomitant]
     Active Substance: APIXABAN
  5. FLUTICASONE PROPIONATE [Concomitant]
     Active Substance: FLUTICASONE PROPIONATE
  6. PREDNISONE [Concomitant]
     Active Substance: PREDNISONE
  7. BUDESONIDE [Concomitant]
     Active Substance: BUDESONIDE
  8. AMIODARONE [Concomitant]
     Active Substance: AMIODARONE
  9. HERBALS\TURMERIC [Concomitant]
     Active Substance: HERBALS\TURMERIC
  10. DILTIAZEM HYDROCHLORIDE [Concomitant]
     Active Substance: DILTIAZEM HYDROCHLORIDE
  11. FERROUS SULFATE [Concomitant]
     Active Substance: FERROUS SULFATE
  12. LEVOTHYROXINE SODIUM [Concomitant]
     Active Substance: LEVOTHYROXINE SODIUM
  13. VITAMINS [Concomitant]
     Active Substance: VITAMINS
  14. DULOXETINE HYDROCHLORIDE [Concomitant]
     Active Substance: DULOXETINE HYDROCHLORIDE
  15. VITAMIN D3 [Concomitant]
     Active Substance: CHOLECALCIFEROL
  16. ATROVENT HFA [Concomitant]
     Active Substance: IPRATROPIUM BROMIDE
  17. MUCINEX MAXIMUM STRENGTH [Concomitant]
     Active Substance: GUAIFENESIN
  18. ROBITUSSIN COUGH + CHEST [Concomitant]
  19. COLACE [Concomitant]
     Active Substance: DOCUSATE SODIUM
  20. ZYRTEC [Concomitant]
     Active Substance: CETIRIZINE HYDROCHLORIDE

REACTIONS (1)
  - Atrial fibrillation [None]
